FAERS Safety Report 11221658 (Version 1)
Quarter: 2015Q2

REPORT INFORMATION
  Report Type: Spontaneous
  Country: US (occurrence: None)
  Receive Date: 20150625
  Receipt Date: 20150625
  Transmission Date: 20150821
  Serious: Yes (Life-Threatening, Hospitalization)
  Sender: FDA-Public Use
  Company Number: None

PATIENT
  Age: 27 Year
  Sex: Female
  Weight: 90.72 kg

DRUGS (6)
  1. INVOKANA [Suspect]
     Active Substance: CANAGLIFLOZIN
     Indication: TYPE 2 DIABETES MELLITUS
     Dosage: 1 TABLET, ONCE DAILY, TAKEN BY MOUTH
     Route: 048
     Dates: start: 20140401, end: 20140420
  2. LANTUS [Concomitant]
     Active Substance: INSULIN GLARGINE
  3. HUMALOG [Concomitant]
     Active Substance: INSULIN LISPRO
  4. LOSARTAN [Concomitant]
     Active Substance: LOSARTAN
  5. ADDERALL XR [Concomitant]
     Active Substance: AMPHETAMINE ASPARTATE\AMPHETAMINE SULFATE\DEXTROAMPHETAMINE SACCHARATE\DEXTROAMPHETAMINE SULFATE
  6. JANUMET [Concomitant]
     Active Substance: METFORMIN HYDROCHLORIDE\SITAGLIPTIN PHOSPHATE

REACTIONS (1)
  - Diabetic ketoacidosis [None]

NARRATIVE: CASE EVENT DATE: 20140408
